FAERS Safety Report 4763915-0 (Version None)
Quarter: 2005Q3

REPORT INFORMATION
  Report Type: 
  Country: None (occurrence: None)
  Receive Date: 20050906
  Receipt Date: 20050823
  Transmission Date: 20060218
  Serious: Yes (Other)
  Sender: FDA-Public Use
  Company Number: 2005119041

PATIENT
  Age: 48 Year
  Sex: Female
  Weight: 58.9676 kg

DRUGS (2)
  1. SUDAFED 12 HOUR [Suspect]
     Indication: SINUS CONGESTION
     Dosage: ONE TO TWO TABLETS 2-3 TIMES
     Dates: start: 20050701, end: 20050801
  2. BENADRYL [Suspect]
     Indication: SINUS CONGESTION
     Dosage: 102 TABLETS/DAY, ORAL
     Route: 048
     Dates: start: 20050701, end: 20050101

REACTIONS (7)
  - DRY MOUTH [None]
  - GRAND MAL CONVULSION [None]
  - HEART RATE INCREASED [None]
  - INSOMNIA [None]
  - NASAL DRYNESS [None]
  - SOMNOLENCE [None]
  - TENSION [None]
